FAERS Safety Report 13305180 (Version 2)
Quarter: 2017Q1

REPORT INFORMATION
  Report Type: Spontaneous
  Country: US (occurrence: US)
  Receive Date: 20170308
  Receipt Date: 20170321
  Transmission Date: 20170428
  Serious: Yes (Hospitalization, Other)
  Sender: FDA-Public Use
  Company Number: US-APOTEX-2017AP007869

PATIENT
  Age: 18 Year
  Sex: Female

DRUGS (3)
  1. AZITHROMYCIN ANHYDROUS. [Suspect]
     Active Substance: AZITHROMYCIN ANHYDROUS
     Indication: BRONCHITIS
     Dosage: UNK
     Route: 048
  2. PROMETHAZINE - DEXTROMETHORPHANE [Concomitant]
     Indication: BRONCHITIS
     Dosage: UNK
     Route: 065
  3. ALBUTEROL                          /00139501/ [Concomitant]
     Active Substance: ALBUTEROL
     Indication: PRODUCT USED FOR UNKNOWN INDICATION
     Dosage: UNK, PRN
     Route: 065

REACTIONS (7)
  - Vaginal haemorrhage [Unknown]
  - Hyperhidrosis [Unknown]
  - Hepato-lenticular degeneration [Unknown]
  - Laceration [Recovered/Resolved]
  - Syncope [Unknown]
  - Acute hepatic failure [Unknown]
  - Fall [Unknown]
